FAERS Safety Report 8198727-1 (Version None)
Quarter: 2012Q1

REPORT INFORMATION
  Report Type: 
  Country: None (occurrence: None)
  Receive Date: 20120309
  Receipt Date: 20120201
  Transmission Date: 20120608
  Serious: No
  Sender: FDA-Public Use
  Company Number: US-AMGEN-USASP2012006786

PATIENT
  Age: 83 Year
  Sex: Female

DRUGS (2)
  1. RITUXAN [Concomitant]
     Indication: LYMPHOMA
  2. PROLIA [Suspect]
     Indication: OSTEOPOROSIS POSTMENOPAUSAL
     Dosage: 60 MG, Q6MO
     Dates: start: 20111102

REACTIONS (4)
  - RASH PRURITIC [None]
  - ARTHROPOD BITE [None]
  - SKIN EXFOLIATION [None]
  - RASH ERYTHEMATOUS [None]
